FAERS Safety Report 6606632-4 (Version None)
Quarter: 2010Q1

REPORT INFORMATION
  Report Type: 
  Country: None (occurrence: None)
  Receive Date: 20100226
  Receipt Date: 20100216
  Transmission Date: 20100710
  Serious: Yes (Other)
  Sender: FDA-Public Use
  Company Number: US-ABBOTT-09P-163-0568993-00

PATIENT
  Sex: Male
  Weight: 3 kg

DRUGS (5)
  1. NORVIR [Suspect]
     Indication: DRUG EXPOSURE DURING PREGNANCY
     Route: 064
  2. TRUVADA [Suspect]
     Indication: DRUG EXPOSURE DURING PREGNANCY
  3. LEXIVA [Suspect]
     Indication: DRUG EXPOSURE DURING PREGNANCY
     Dosage: 1400MG/DAY
     Route: 048
  4. ZIDOVUDINE [Suspect]
     Indication: DRUG EXPOSURE DURING PREGNANCY
     Route: 064
     Dates: start: 20090814, end: 20090814
  5. ZIDOVUDINE [Suspect]
     Route: 064
     Dates: start: 20090814, end: 20090814

REACTIONS (2)
  - DRUG EXPOSURE DURING PREGNANCY [None]
  - FOETAL CARDIAC DISORDER [None]
